FAERS Safety Report 14098921 (Version 1)
Quarter: 2017Q4

REPORT INFORMATION
  Report Type: Spontaneous
  Country: US (occurrence: US)
  Receive Date: 20171017
  Receipt Date: 20171017
  Transmission Date: 20180321
  Serious: Yes (Life-Threatening, Hospitalization, Other)
  Sender: FDA-Public Use
  Company Number: US-GLAXOSMITHKLINE-US2017159106

PATIENT
  Age: 13 Year
  Sex: Female

DRUGS (1)
  1. BUPROPION. [Suspect]
     Active Substance: BUPROPION
     Indication: INTENTIONAL SELF-INJURY
     Dosage: UNK
     Route: 048

REACTIONS (6)
  - Electrocardiogram QT prolonged [Unknown]
  - Seizure [Recovered/Resolved]
  - Toxicity to various agents [Unknown]
  - Intentional overdose [Unknown]
  - Hallucination [Recovered/Resolved]
  - Tachycardia [Unknown]
